FAERS Safety Report 7991089-1 (Version None)
Quarter: 2011Q4

REPORT INFORMATION
  Report Type: 
  Country: None (occurrence: None)
  Receive Date: 20111219
  Receipt Date: 20111215
  Transmission Date: 20120403
  Serious: Yes (Other)
  Sender: FDA-Public Use
  Company Number: US-ROCHE-802940

PATIENT
  Sex: Female
  Weight: 56.75 kg

DRUGS (3)
  1. ACCUTANE [Suspect]
     Indication: ACNE
     Route: 065
     Dates: start: 19990101, end: 20000101
  2. ACCUTANE [Suspect]
     Dates: start: 20020101, end: 20020101
  3. ACCUTANE [Suspect]
     Dates: start: 20060101, end: 20070101

REACTIONS (5)
  - OBSESSIVE-COMPULSIVE DISORDER [None]
  - IRRITABLE BOWEL SYNDROME [None]
  - DEPRESSION [None]
  - SUICIDE ATTEMPT [None]
  - INFLAMMATORY BOWEL DISEASE [None]
